FAERS Safety Report 7820518-9 (Version None)
Quarter: 2011Q4

REPORT INFORMATION
  Report Type: 
  Country: None (occurrence: None)
  Receive Date: 20111018
  Receipt Date: 20111012
  Transmission Date: 20120403
  Serious: Yes (Hospitalization)
  Sender: FDA-Public Use
  Company Number: CA-AMGEN-CANSP2011052789

PATIENT
  Age: 30 Year
  Sex: Male

DRUGS (1)
  1. NPLATE [Suspect]
     Indication: IDIOPATHIC THROMBOCYTOPENIC PURPURA
     Dosage: 250 MUG, QWK
     Dates: start: 20090101

REACTIONS (5)
  - MOUTH HAEMORRHAGE [None]
  - PLATELET COUNT DECREASED [None]
  - PYREXIA [None]
  - GASTROENTERITIS SALMONELLA [None]
  - HAEMOGLOBIN DECREASED [None]
